FAERS Safety Report 4374627-X (Version None)
Quarter: 2004Q2

REPORT INFORMATION
  Report Type: 
  Country: None (occurrence: None)
  Receive Date: 20040602
  Receipt Date: 20040203
  Transmission Date: 20050107
  Serious: No
  Sender: FDA-Public Use
  Company Number: 200412248BWH

PATIENT
  Age: 74 Year
  Sex: Male
  Weight: 86.1834 kg

DRUGS (8)
  1. LEVITRA [Suspect]
     Indication: ERECTILE DYSFUNCTION
     Dosage: SEE IMAGE
     Route: 048
     Dates: start: 20040101
  2. LEVITRA [Suspect]
     Indication: ERECTILE DYSFUNCTION
     Dosage: SEE IMAGE
     Route: 048
     Dates: start: 20040202
  3. ALTACE [Concomitant]
  4. CALCIUM [Concomitant]
  5. FOSAMAX [Concomitant]
  6. CARDURA [Concomitant]
  7. UNIPHYL [Concomitant]
  8. ALBUTEROL [Concomitant]

REACTIONS (2)
  - HEADACHE [None]
  - HEART RATE INCREASED [None]
